FAERS Safety Report 6376153-5 (Version None)
Quarter: 2009Q3

REPORT INFORMATION
  Report Type: 
  Country: None (occurrence: None)
  Receive Date: 20090921
  Receipt Date: 20090907
  Transmission Date: 20100115
  Serious: Yes (Other)
  Sender: FDA-Public Use
  Company Number: SPV1-2009-01646

PATIENT
  Age: 4 Year
  Sex: Male
  Weight: 21.5 kg

DRUGS (3)
  1. ELAPRASE [Suspect]
     Indication: MUCOPOLYSACCHARIDOSIS II
     Dosage: 0.56 MG/KG, 1X/WEEK, IV DRIP
     Route: 041
     Dates: start: 20090216
  2. FENISTIL (DIMETINDENE MALEATE) [Concomitant]
  3. PREDNISOLONE [Concomitant]

REACTIONS (1)
  - ANAPHYLACTOID REACTION [None]
